FAERS Safety Report 7641018-5 (Version None)
Quarter: 2011Q3

REPORT INFORMATION
  Report Type: 
  Country: None (occurrence: None)
  Receive Date: 20110722
  Receipt Date: 20110706
  Transmission Date: 20111222
  Serious: Yes (Other)
  Sender: FDA-Public Use
  Company Number: 2011MA008438

PATIENT
  Age: 46 Year
  Sex: Female

DRUGS (4)
  1. HYDANTOINE [Suspect]
     Indication: PRODUCT USED FOR UNKNOWN INDICATION
  2. COTRIM [Suspect]
     Indication: PRODUCT USED FOR UNKNOWN INDICATION
  3. PANTOPRAZOLE [Suspect]
     Indication: PRODUCT USED FOR UNKNOWN INDICATION
  4. CARBAMAZEPINE [Suspect]
     Indication: MENINGIOMA

REACTIONS (2)
  - TOXIC EPIDERMAL NECROLYSIS [None]
  - SKIN TEST POSITIVE [None]
